FAERS Safety Report 8033903-X (Version None)
Quarter: 2012Q1

REPORT INFORMATION
  Report Type: 
  Country: None (occurrence: None)
  Receive Date: 20120110
  Receipt Date: 20120102
  Transmission Date: 20120608
  Serious: Yes (Hospitalization)
  Sender: FDA-Public Use
  Company Number: US-ELI_LILLY_AND_COMPANY-US201201001346

PATIENT
  Sex: Female

DRUGS (2)
  1. CYMBALTA [Suspect]
     Dosage: 60 MG, EACH MORNING
  2. CYMBALTA [Suspect]
     Dosage: 30 MG, UNK

REACTIONS (3)
  - PLASTIC SURGERY [None]
  - SUTURE RUPTURE [None]
  - HAEMORRHAGE [None]
